FAERS Safety Report 4709801-3 (Version None)
Quarter: 2005Q3

REPORT INFORMATION
  Report Type: 
  Country: None (occurrence: None)
  Receive Date: 20050708
  Receipt Date: 20050705
  Transmission Date: 20060218
  Serious: Yes (Hospitalization)
  Sender: FDA-Public Use
  Company Number: US-MERCK-0507USA00446

PATIENT
  Age: 75 Year
  Sex: Female

DRUGS (4)
  1. FOSAMAX [Suspect]
     Indication: OSTEOPOROSIS
     Route: 048
     Dates: start: 20000101, end: 20050626
  2. SYNTHROID [Concomitant]
     Route: 065
  3. LESCOL XL [Concomitant]
     Route: 065
  4. CARDIZEM [Concomitant]
     Route: 065

REACTIONS (1)
  - RIB FRACTURE [None]
